FAERS Safety Report 4811227-9 (Version None)
Quarter: 2005Q4

REPORT INFORMATION
  Report Type: 
  Country: None (occurrence: None)
  Receive Date: 20051026
  Receipt Date: 20051026
  Transmission Date: 20060501
  Serious: Yes (Hospitalization)
  Sender: FDA-Public Use
  Company Number: None

PATIENT
  Age: 52 Year
  Sex: Male
  Weight: 38.1022 kg

DRUGS (6)
  1. ALIMTA [Suspect]
     Indication: RECURRENT CANCER
     Dosage: 720MG X3; 690MG X1; Q 21 DAYS ROUTE = IV
     Route: 042
     Dates: start: 20050715
  2. ALIMTA [Suspect]
     Indication: SQUAMOUS CELL CARCINOMA
     Dosage: 720MG X3; 690MG X1; Q 21 DAYS ROUTE = IV
     Route: 042
     Dates: start: 20050715
  3. ALIMTA [Suspect]
     Indication: RECURRENT CANCER
     Dosage: 720MG X3; 690MG X1; Q 21 DAYS ROUTE = IV
     Route: 042
     Dates: start: 20050902
  4. ALIMTA [Suspect]
     Indication: SQUAMOUS CELL CARCINOMA
     Dosage: 720MG X3; 690MG X1; Q 21 DAYS ROUTE = IV
     Route: 042
     Dates: start: 20050902
  5. CISPLATIN [Suspect]
     Dosage: 75MG/M2; 108MG X3; 104MG X1
     Route: 042
     Dates: start: 20050812
  6. CISPLATIN [Suspect]
     Dosage: 75MG/M2; 108MG X3; 104MG X1
     Route: 042
     Dates: start: 20050923

REACTIONS (6)
  - BLOOD GLUCOSE DECREASED [None]
  - DEPRESSED LEVEL OF CONSCIOUSNESS [None]
  - HYPOTENSION [None]
  - HYPOTHERMIA [None]
  - PNEUMONIA [None]
  - TREATMENT NONCOMPLIANCE [None]
